FAERS Safety Report 20992213 (Version 3)
Quarter: 2022Q3

REPORT INFORMATION
  Report Type: Spontaneous
  Country: US (occurrence: None)
  Receive Date: 20220622
  Receipt Date: 20220812
  Transmission Date: 20221026
  Serious: Yes (Other)
  Sender: FDA-Public Use
  Company Number: US-Hikma Pharmaceuticals USA Inc.-US-H14001-22-01578

PATIENT
  Age: 58 Year
  Sex: Female

DRUGS (2)
  1. ALPRAZOLAM [Suspect]
     Active Substance: ALPRAZOLAM
     Indication: Product used for unknown indication
     Route: 065
  2. ALCOHOL [Suspect]
     Active Substance: ALCOHOL
     Indication: Product used for unknown indication
     Dosage: 12 OUNCES OF VODKA
     Route: 065

REACTIONS (5)
  - Loss of consciousness [Recovered/Resolved]
  - Dyspnoea [Unknown]
  - Hyporeflexia [Unknown]
  - Oxygen saturation decreased [Unknown]
  - Drug abuse [Unknown]
